FAERS Safety Report 7251897-1 (Version None)
Quarter: 2011Q1

REPORT INFORMATION
  Report Type: 
  Country: None (occurrence: None)
  Receive Date: 20110128
  Receipt Date: 20100106
  Transmission Date: 20110831
  Serious: No
  Sender: FDA-Public Use
  Company Number: US-ABBOTT-10P-163-0618473-00

PATIENT
  Age: 18 Year
  Sex: Female

DRUGS (3)
  1. HUMIRA [Suspect]
     Indication: PSORIASIS
     Dates: start: 20091124, end: 20091124
  2. TOPICAL MEDICATIONS [Concomitant]
     Indication: PSORIASIS
     Dosage: UNKNOWN
     Route: 061
  3. HUMIRA [Suspect]
     Dates: start: 20091201

REACTIONS (2)
  - INJECTION SITE PAIN [None]
  - LYMPHADENOPATHY [None]
